FAERS Safety Report 7186905-X (Version None)
Quarter: 2010Q4

REPORT INFORMATION
  Report Type: 
  Country: None (occurrence: None)
  Receive Date: 20101222
  Receipt Date: 20101214
  Transmission Date: 20110411
  Serious: Yes (Other)
  Sender: FDA-Public Use
  Company Number: GB-ELI_LILLY_AND_COMPANY-GB201011006971

PATIENT
  Sex: Male
  Weight: 115 kg

DRUGS (15)
  1. EXENATIDE [Suspect]
     Indication: TYPE 2 DIABETES MELLITUS
     Dosage: 10 UG, 2/D
     Route: 058
     Dates: start: 20100427, end: 20100706
  2. INSULIN GLARGINE [Suspect]
     Indication: TYPE 2 DIABETES MELLITUS
  3. METFORMIN [Suspect]
     Indication: TYPE 2 DIABETES MELLITUS
  4. ASPIRIN [Concomitant]
     Dates: start: 20071111
  5. DUTASTERIDE [Concomitant]
     Dates: start: 20071111
  6. TAMSULOSIN [Concomitant]
     Dates: start: 20071111
  7. TRAMADOL [Concomitant]
     Indication: ANGIOPATHY
     Dates: start: 20071111
  8. NITROGLYCERIN [Concomitant]
     Indication: ANGINA PECTORIS
     Dates: start: 20070215
  9. DILTIAZEM [Concomitant]
     Indication: ANGINA PECTORIS
     Dates: start: 20070215
  10. LANSOPRAZOLE [Concomitant]
     Dates: start: 20070111
  11. GLICLAZIDE [Concomitant]
     Indication: DIABETES MELLITUS
     Dates: start: 20071023
  12. BENDROFLUMETHIAZIDE [Concomitant]
     Indication: HYPERTENSION
     Dates: start: 20080212
  13. SIMVASTATIN [Concomitant]
     Indication: ARTERIOSCLEROSIS CORONARY ARTERY
     Dates: start: 20070131
  14. NICORANDIL [Concomitant]
     Dates: start: 20070215
  15. RAMIPRIL [Concomitant]
     Indication: HYPERTENSION
     Dates: start: 20071128

REACTIONS (4)
  - ALANINE AMINOTRANSFERASE INCREASED [None]
  - ASPARTATE AMINOTRANSFERASE INCREASED [None]
  - HEPATIC ENZYME INCREASED [None]
  - PANCREATIC CARCINOMA [None]
